FAERS Safety Report 5073561-X (Version None)
Quarter: 2006Q3

REPORT INFORMATION
  Report Type: 
  Country: None (occurrence: None)
  Receive Date: 20060808
  Receipt Date: 20060728
  Transmission Date: 20061208
  Serious: Yes (Hospitalization)
  Sender: FDA-Public Use
  Company Number: PHRM2006FR02210

PATIENT
  Age: 51 Year
  Sex: Female
  Weight: 53 kg

DRUGS (6)
  1. ESIDRIX [Suspect]
     Dosage: 25 MG, QD
     Route: 048
     Dates: start: 20060610, end: 20060617
  2. LASILIX [Suspect]
     Dosage: 1 DF, TID
     Route: 042
     Dates: start: 20060609, end: 20060612
  3. OFLOCET [Concomitant]
     Dosage: 1 DF, BID
     Route: 048
     Dates: start: 20060614, end: 20060630
  4. OMEPRAZOLE [Concomitant]
     Dosage: 20 MG, QD
     Route: 048
     Dates: start: 20060609
  5. AUGMENTIN [Concomitant]
  6. TRILEPTAL [Suspect]
     Dosage: 1.5 DF, BID
     Route: 048
     Dates: start: 20060609

REACTIONS (6)
  - COMA [None]
  - ESCHERICHIA INFECTION [None]
  - HYPERTHERMIA [None]
  - HYPONATRAEMIA [None]
  - RENAL FAILURE [None]
  - STAPHYLOCOCCAL BACTERAEMIA [None]
